FAERS Safety Report 8956008 (Version 2)
Quarter: 2013Q2

REPORT INFORMATION
  Report Type: Spontaneous
  Country: JP (occurrence: JP)
  Receive Date: 20121210
  Receipt Date: 20130430
  Transmission Date: 20140414
  Serious: Yes (Other)
  Sender: FDA-Public Use
  Company Number: JP-TEVA-374759USA

PATIENT
  Age: 59 Year
  Sex: Male

DRUGS (4)
  1. TREANDA [Suspect]
     Indication: B-CELL LYMPHOMA
     Dosage: UID/QD
     Route: 042
     Dates: start: 20110314, end: 20110315
  2. TREANDA [Suspect]
     Dosage: UID/QD
     Route: 042
     Dates: start: 20110415, end: 20110416
  3. TREANDA [Suspect]
     Route: 042
     Dates: start: 20110520, end: 20110521
  4. TREANDA [Suspect]
     Route: 042
     Dates: start: 20110701, end: 20110702

REACTIONS (3)
  - Vasculitis [Recovered/Resolved]
  - Lymphocyte count decreased [Recovered/Resolved]
  - White blood cell count decreased [Recovered/Resolved]
